FAERS Safety Report 5823902-8 (Version None)
Quarter: 2008Q3

REPORT INFORMATION
  Report Type: 
  Country: None (occurrence: None)
  Receive Date: 20080724
  Receipt Date: 20080708
  Transmission Date: 20090109
  Serious: Yes (Life-Threatening, Hospitalization)
  Sender: FDA-Public Use
  Company Number: DSA_32034_2008

PATIENT
  Age: 20 Year
  Sex: Male

DRUGS (3)
  1. DILTIAZEM HYDROCHLORIDE [Suspect]
     Indication: HEART RATE IRREGULAR
     Dosage: (25 MG 1X INTRAVENOUS BOLUS), (5 MG Q1H INTRAVENOUS DRIP)
  2. METOPROLOL SUCCINATE [Suspect]
     Indication: HEART RATE IRREGULAR
     Dosage: (15 MG 1X OVER 15 MINUTES INTRAVENOUS DRIP)
     Route: 041
  3. ALBUTEROL [Concomitant]

REACTIONS (4)
  - ATRIOVENTRICULAR BLOCK SECOND DEGREE [None]
  - DRUG INTERACTION [None]
  - VENTRICULAR FIBRILLATION [None]
  - VENTRICULAR TACHYCARDIA [None]
